FAERS Safety Report 14534786 (Version 1)
Quarter: 2018Q1

REPORT INFORMATION
  Report Type: Spontaneous
  Country: US (occurrence: US)
  Receive Date: 20180214
  Receipt Date: 20180214
  Transmission Date: 20180509
  Serious: Yes (Death)
  Sender: FDA-Public Use
  Company Number: None

PATIENT
  Age: 62 Year
  Sex: Male

DRUGS (6)
  1. SERTRALINE [Concomitant]
     Active Substance: SERTRALINE HYDROCHLORIDE
  2. IPRATROPIUM/SOLALBUTEROL [Concomitant]
  3. CLOPIDOGREL [Concomitant]
     Active Substance: CLOPIDOGREL BISULFATE
  4. BUPROPIN [Concomitant]
     Active Substance: BUPROPION
  5. SIMVASTATIN. [Concomitant]
     Active Substance: SIMVASTATIN
  6. GLATIRAMER 10MG [Suspect]
     Active Substance: GLATIRAMER
     Indication: MULTIPLE SCLEROSIS
     Dosage: 1 SYRINGE
     Route: 058
     Dates: start: 20171031

REACTIONS (1)
  - Death [None]

NARRATIVE: CASE EVENT DATE: 20180212
